FAERS Safety Report 17401227 (Version 1)
Quarter: 2020Q1

REPORT INFORMATION
  Report Type: Spontaneous
  Country: US (occurrence: US)
  Receive Date: 20200211
  Receipt Date: 20200211
  Transmission Date: 20200409
  Serious: Yes (Other)
  Sender: FDA-Public Use
  Company Number: US-ASTRAZENECA-2020SE19069

PATIENT
  Age: 5 Month
  Sex: Male
  Weight: 6.7 kg

DRUGS (2)
  1. SYNAGIS [Suspect]
     Active Substance: PALIVIZUMAB
     Indication: ATRIAL SEPTAL DEFECT
     Dosage: 100 MG/1 ML VL LIQUID, INJECT 15 MG/KG INTO THE MUSCLE ONCE A MONTH (EVERY 28-30 DAYS)
     Route: 030
  2. SYNAGIS [Suspect]
     Active Substance: PALIVIZUMAB
     Indication: ATRIOVENTRICULAR SEPTAL DEFECT
     Dosage: 100 MG/1 ML VL LIQUID, INJECT 15 MG/KG INTO THE MUSCLE ONCE A MONTH (EVERY 28-30 DAYS)
     Route: 030

REACTIONS (4)
  - Mass [Unknown]
  - Product dose omission [Unknown]
  - Pulmonary hypertension [Unknown]
  - Tenderness [Unknown]

NARRATIVE: CASE EVENT DATE: 201912
